FAERS Safety Report 21450041 (Version 1)
Quarter: 2022Q4

REPORT INFORMATION
  Report Type: Spontaneous
  Country: US (occurrence: None)
  Receive Date: 20221012
  Receipt Date: 20221012
  Transmission Date: 20230112
  Serious: No
  Sender: FDA-Public Use
  Company Number: None

PATIENT
  Age: 81 Year
  Sex: Male
  Weight: 105.23 kg

DRUGS (9)
  1. ABIRATERONE [Suspect]
     Active Substance: ABIRATERONE
     Indication: Prostate cancer
     Dosage: FREQUENCY : DAILY;?
     Route: 048
     Dates: start: 20220617
  2. ASPIRIN [Concomitant]
     Active Substance: ASPIRIN
  3. BENADRYL [Concomitant]
     Active Substance: DIPHENHYDRAMINE HYDROCHLORIDE
  4. CRANBERRY [Concomitant]
     Active Substance: CRANBERRY
  5. CALCIUM [Concomitant]
     Active Substance: CALCIUM
  6. FUROSEMIDE [Concomitant]
     Active Substance: FUROSEMIDE
  7. PREDNISONE [Concomitant]
     Active Substance: PREDNISONE
  8. PREVACID [Concomitant]
     Active Substance: LANSOPRAZOLE
  9. SIMVASTATIN [Concomitant]
     Active Substance: SIMVASTATIN

REACTIONS (1)
  - Hospice care [None]
